FAERS Safety Report 4475879-8 (Version None)
Quarter: 2004Q4

REPORT INFORMATION
  Report Type: 
  Country: None (occurrence: None)
  Receive Date: 20041012
  Receipt Date: 20040929
  Transmission Date: 20050328
  Serious: Yes (Hospitalization)
  Sender: FDA-Public Use
  Company Number: 2003188582US

PATIENT
  Sex: Male
  Weight: 3.2 kg

DRUGS (1)
  1. DOSTINEX [Suspect]
     Indication: PROLACTINOMA
     Dosage: 0.5 MG, WEEKLY
     Dates: start: 19980513, end: 19980601

REACTIONS (7)
  - CAESAREAN SECTION [None]
  - CARDIAC DISORDER [None]
  - DRUG EXPOSURE DURING PREGNANCY [None]
  - LABOUR ONSET DELAYED [None]
  - NEONATAL DISORDER [None]
  - PREMATURE BABY [None]
  - UMBILICAL CORD AROUND NECK [None]
